FAERS Safety Report 7902164-1 (Version None)
Quarter: 2011Q4

REPORT INFORMATION
  Report Type: 
  Country: None (occurrence: None)
  Receive Date: 20111108
  Receipt Date: 20100530
  Transmission Date: 20120403
  Serious: No
  Sender: FDA-Public Use
  Company Number: US-PFIZER INC-2010068313

PATIENT
  Sex: Male
  Weight: 86.168 kg

DRUGS (6)
  1. CLINDAMYCIN HCL [Suspect]
     Indication: ABSCESS JAW
  2. VALIUM [Concomitant]
     Indication: POST-TRAUMATIC STRESS DISORDER
     Dosage: 10-20 MG DAILY
     Route: 048
  3. MORPHINE [Concomitant]
     Indication: PAIN
     Dosage: 30 MG, 1X/DAY
     Route: 048
  4. CLINDAMYCIN HCL [Suspect]
     Indication: ACCIDENT
     Dosage: 150 MG, 4X/DAY
     Route: 048
     Dates: start: 20100519, end: 20100526
  5. METHADONE [Concomitant]
     Indication: PAIN
     Dosage: 140 MG, 1X/DAY
     Route: 048
     Dates: start: 20000101
  6. SOMA [Concomitant]
     Dosage: UNK

REACTIONS (12)
  - SCAR [None]
  - CHEST DISCOMFORT [None]
  - GASTROINTESTINAL PAIN [None]
  - LIVER DISORDER [None]
  - HEADACHE [None]
  - HEAD DISCOMFORT [None]
  - BURNING SENSATION [None]
  - SKIN DISORDER [None]
  - FEELING HOT [None]
  - ARTHROPATHY [None]
  - ARTHRALGIA [None]
  - DIARRHOEA [None]
